FAERS Safety Report 7473189-8 (Version None)
Quarter: 2011Q2

REPORT INFORMATION
  Report Type: 
  Country: None (occurrence: None)
  Receive Date: 20110511
  Receipt Date: 20110503
  Transmission Date: 20111010
  Serious: Yes (Death)
  Sender: FDA-Public Use
  Company Number: A0906206A

PATIENT
  Age: 84 Year
  Sex: Male

DRUGS (2)
  1. ADVAIR DISKUS 100/50 [Suspect]
     Route: 055
     Dates: start: 20100729
  2. VENTOLIN HFA [Suspect]
     Dosage: 90MCG UNKNOWN
     Route: 055
     Dates: start: 20100729

REACTIONS (4)
  - NEOPLASM MALIGNANT [None]
  - DEATH [None]
  - RENAL FAILURE [None]
  - CLOSTRIDIAL INFECTION [None]
